FAERS Safety Report 8470230-0 (Version None)
Quarter: 2012Q2

REPORT INFORMATION
  Report Type: 
  Country: None (occurrence: None)
  Receive Date: 20120621
  Receipt Date: 20120621
  Transmission Date: 20120825
  Serious: Yes (Other)
  Sender: FDA-Public Use
  Company Number: None

PATIENT
  Sex: Female

DRUGS (6)
  1. LORAZEPAM [Concomitant]
  2. HYDROCHLOROTHIACINE [Concomitant]
  3. INVAGA [Concomitant]
  4. REMERON [Concomitant]
  5. GABAPENTIN [Suspect]
     Indication: PAIN IN EXTREMITY
     Dosage: 100 MG THREE A DAY PO
     Route: 048
     Dates: start: 20120605, end: 20120620
  6. HYDROCODON [Concomitant]

REACTIONS (3)
  - DYSARTHRIA [None]
  - SOMNOLENCE [None]
  - GAIT DISTURBANCE [None]
